FAERS Safety Report 9845790 (Version 1)
Quarter: 2014Q1

REPORT INFORMATION
  Report Type: Spontaneous
  Country: US (occurrence: US)
  Receive Date: 20140127
  Receipt Date: 20140127
  Transmission Date: 20141002
  Serious: No
  Sender: FDA-Public Use
  Company Number: US-PFIZER INC-2014021178

PATIENT
  Sex: Female

DRUGS (1)
  1. HYDROCORTISONE [Suspect]
     Dosage: UNK

REACTIONS (5)
  - Skin disorder [Unknown]
  - Weight increased [Unknown]
  - Fat tissue increased [Unknown]
  - Skin atrophy [Unknown]
  - Skin striae [Unknown]
